FAERS Safety Report 7982825-9 (Version None)
Quarter: 2011Q4

REPORT INFORMATION
  Report Type: 
  Country: None (occurrence: None)
  Receive Date: 20111215
  Receipt Date: 20111206
  Transmission Date: 20120403
  Serious: Yes (Hospitalization)
  Sender: FDA-Public Use
  Company Number: US-BAYER-2011-085672

PATIENT
  Age: 32 Year
  Sex: Female
  Weight: 47.166 kg

DRUGS (12)
  1. YASMIN [Suspect]
     Indication: CONTRACEPTION
     Dosage: UNK
     Dates: start: 20041110, end: 20090810
  2. IBUPROFEN [Concomitant]
     Dosage: UNK UNK, PRN
  3. CLINDAMYCIN [Concomitant]
  4. ASCORBIC ACID [Concomitant]
     Dosage: UNK UNK, PRN
  5. YASMIN [Suspect]
     Dosage: UNK
     Dates: start: 20090701, end: 20090801
  6. REMICADE [Concomitant]
  7. MULTI-VITAMIN [Concomitant]
  8. XANAX [Concomitant]
  9. DROSPIRENONE AND ETHINYL ESTRADIOL [Suspect]
  10. PREDNISONE [Concomitant]
  11. HUMIRA [Concomitant]
  12. ALBUTEROL [Concomitant]
     Dosage: UNK UNK, PRN

REACTIONS (3)
  - DEEP VEIN THROMBOSIS [None]
  - INJURY [None]
  - PAIN [None]
